FAERS Safety Report 24875968 (Version 4)
Quarter: 2025Q1

REPORT INFORMATION
  Report Type: Spontaneous
  Country: TR (occurrence: TR)
  Receive Date: 20250123
  Receipt Date: 20250310
  Transmission Date: 20250409
  Serious: Yes (Death, Other)
  Sender: ABBVIE
  Company Number: TR-PFIZER INC-PV202500007046

PATIENT
  Sex: Male

DRUGS (8)
  1. AVIBACTAM SODIUM\CEFTAZIDIME [Suspect]
     Active Substance: AVIBACTAM SODIUM\CEFTAZIDIME
     Indication: Product used for unknown indication
     Route: 065
     Dates: start: 20241227
  2. MEROPENEM [Suspect]
     Active Substance: MEROPENEM
     Indication: Pneumonia
     Route: 065
     Dates: start: 20241127, end: 20241216
  3. MEROPENEM [Suspect]
     Active Substance: MEROPENEM
     Indication: Pneumonia
     Route: 042
     Dates: start: 20241223, end: 20241227
  4. COLISTIN [Suspect]
     Active Substance: COLISTIN
     Indication: Product used for unknown indication
     Dosage: COLISTIN INHALER 75 MG TWICE DAILY
     Route: 065
     Dates: start: 20241223, end: 20241227
  5. VANCOMYCIN [Suspect]
     Active Substance: VANCOMYCIN
     Indication: Product used for unknown indication
     Dosage: 1 G 2 TIMES A DAY
     Route: 042
     Dates: start: 20241227
  6. FLUCONAZOLE [Suspect]
     Active Substance: FLUCONAZOLE
     Indication: Product used for unknown indication
     Dosage: 200 MG, 1X/DAY
     Route: 065
     Dates: start: 20241114, end: 20241127
  7. PIPERACILLIN SODIUM\TAZOBACTAM SODIUM [Suspect]
     Active Substance: PIPERACILLIN SODIUM\TAZOBACTAM SODIUM
     Indication: Product used for unknown indication
     Dosage: 4.5 G, 4X/DAY
     Route: 042
     Dates: start: 20241111, end: 20241127
  8. SULFAMETHOXAZOLE\TRIMETHOPRIM [Suspect]
     Active Substance: SULFAMETHOXAZOLE\TRIMETHOPRIM
     Indication: Product used for unknown indication
     Dosage: 1200/240 MG 4 TIMES A DAY
     Route: 065
     Dates: start: 20241111, end: 20241127

REACTIONS (13)
  - Cardiac arrest [Fatal]
  - Tachypnoea [Fatal]
  - Oxygen saturation decreased [Fatal]
  - Diarrhoea [Fatal]
  - Lung consolidation [Fatal]
  - Loss of consciousness [Fatal]
  - Klebsiella infection [Recovered/Resolved]
  - C-reactive protein increased [Fatal]
  - Condition aggravated [Fatal]
  - Haemodynamic instability [Fatal]
  - Anuria [Fatal]
  - Atelectasis [Fatal]
  - Staphylococcal infection [Fatal]

NARRATIVE: CASE EVENT DATE: 20241116
